FAERS Safety Report 5679057-6 (Version None)
Quarter: 2008Q1

REPORT INFORMATION
  Report Type: 
  Country: None (occurrence: None)
  Receive Date: 20080325
  Receipt Date: 20080317
  Transmission Date: 20080703
  Serious: Yes (Other)
  Sender: FDA-Public Use
  Company Number: US-BAYER-200810716BCC

PATIENT
  Age: 74 Year
  Sex: Female
  Weight: 73 kg

DRUGS (15)
  1. ASPIRIN [Suspect]
     Indication: BACK PAIN
     Dosage: TOTAL DAILY DOSE: 500 MG  UNIT DOSE: 500 MG
     Route: 048
     Dates: start: 19860101
  2. ASPIRIN [Suspect]
     Indication: BACK PAIN
     Dosage: TOTAL DAILY DOSE: 975 MG  UNIT DOSE: 325 MG
     Route: 048
     Dates: start: 20060101
  3. GINKGO [Suspect]
     Indication: DRUG USE FOR UNKNOWN INDICATION
  4. SYNTHROID [Concomitant]
  5. SELENIUM [Concomitant]
  6. NIACIN [Concomitant]
  7. GARLIC [Concomitant]
  8. CALCIUM [Concomitant]
  9. FLAX SEED OIL [Concomitant]
  10. VITAMIN B-12 [Concomitant]
  11. VITAMIN E [Concomitant]
  12. GLUCOSAMINE [Concomitant]
  13. FISH OIL [Concomitant]
  14. MAGNESIUM [Concomitant]
  15. POTASSIUM CHLORIDE [Concomitant]

REACTIONS (1)
  - ANAL HAEMORRHAGE [None]
